FAERS Safety Report 8064167-9 (Version None)
Quarter: 2012Q1

REPORT INFORMATION
  Report Type: 
  Country: None (occurrence: None)
  Receive Date: 20120123
  Receipt Date: 20120118
  Transmission Date: 20120608
  Serious: Yes (Hospitalization, Other)
  Sender: FDA-Public Use
  Company Number: CH-VIIV HEALTHCARE LIMITED-B0776889A

PATIENT
  Age: 50 Year
  Sex: Male

DRUGS (6)
  1. ISENTRESS [Suspect]
     Indication: HIV INFECTION
     Route: 048
     Dates: start: 20110401
  2. MARAVIROC [Suspect]
     Indication: HIV INFECTION
     Route: 048
     Dates: start: 20110401
  3. NORVIR [Suspect]
     Indication: HIV INFECTION
     Route: 048
     Dates: start: 20110401
  4. REYATAZ [Suspect]
     Indication: HIV INFECTION
     Route: 048
     Dates: start: 20110401
  5. QUININE SULFATE [Suspect]
     Indication: PLASMODIUM FALCIPARUM INFECTION
     Route: 042
     Dates: start: 20111129, end: 20111130
  6. LAMIVUDINE (EPIVIR HBV) [Concomitant]
     Route: 048
     Dates: start: 20110401

REACTIONS (1)
  - MYALGIA [None]
